FAERS Safety Report 7684976-5 (Version None)
Quarter: 2011Q3

REPORT INFORMATION
  Report Type: 
  Country: None (occurrence: None)
  Receive Date: 20110816
  Receipt Date: 20110506
  Transmission Date: 20111222
  Serious: No
  Sender: FDA-Public Use
  Company Number: US-MYLANLABS-2011S1009529

PATIENT
  Age: 68 Year
  Sex: Female

DRUGS (1)
  1. CLORAZEPATE DIPOTASSIUM [Suspect]
     Route: 048
     Dates: start: 20040101, end: 20110421

REACTIONS (5)
  - SINUS CONGESTION [None]
  - PRURITUS [None]
  - DYSPNOEA [None]
  - NERVOUSNESS [None]
  - PULMONARY CONGESTION [None]
